FAERS Safety Report 8861694 (Version 3)
Quarter: 2017Q1

REPORT INFORMATION
  Report Type: Report from Study
  Country: US (occurrence: US)
  Receive Date: 20121025
  Receipt Date: 20170210
  Transmission Date: 20170429
  Serious: Yes (Other)
  Sender: FDA-Public Use
  Company Number: US-AMGEN-USASP2012019897

PATIENT
  Age: 57 Year
  Sex: Female
  Weight: 99 kg

DRUGS (10)
  1. VITAMIN D [Concomitant]
     Active Substance: CHOLECALCIFEROL
     Dosage: 2000 IU, UNK
  2. SULFASALAZINE DELAYED-RELEASE [Concomitant]
     Active Substance: SULFASALAZINE
     Dosage: 500 MG, UNK
  3. FISH OIL [Concomitant]
     Active Substance: FISH OIL
  4. ENBREL [Suspect]
     Active Substance: ETANERCEPT
     Indication: ANKYLOSING SPONDYLITIS
     Dosage: 50 MG, QWK
     Route: 058
     Dates: start: 2011
  5. CYMBALTA [Concomitant]
     Active Substance: DULOXETINE HYDROCHLORIDE
     Dosage: 60 MG, UNK
  6. ABILIFY [Concomitant]
     Active Substance: ARIPIPRAZOLE
     Dosage: 2 MG, UNK
  7. ENBREL [Suspect]
     Active Substance: ETANERCEPT
     Indication: RHEUMATOID ARTHRITIS
  8. LUNESTA [Concomitant]
     Active Substance: ESZOPICLONE
     Dosage: 3 MG, UNK
  9. LYRICA [Concomitant]
     Active Substance: PREGABALIN
     Dosage: 300 MG, UNK
  10. APLENZIN [Concomitant]
     Active Substance: BUPROPION HYDROBROMIDE
     Dosage: 174 MG, UNK

REACTIONS (2)
  - Incorrect product storage [Unknown]
  - Sinusitis [Recovered/Resolved]

NARRATIVE: CASE EVENT DATE: 2016
